FAERS Safety Report 10410000 (Version 2)
Quarter: 2014Q3

REPORT INFORMATION
  Report Type: Spontaneous
  Country: US (occurrence: US)
  Receive Date: 20140826
  Receipt Date: 20140908
  Transmission Date: 20150326
  Serious: Yes (Death, Hospitalization, Other)
  Sender: FDA-Public Use
  Company Number: 2014SP002705

PATIENT
  Sex: Male

DRUGS (2)
  1. LATUDA [Suspect]
     Active Substance: LURASIDONE HYDROCHLORIDE
     Indication: AGGRESSION
     Route: 048
     Dates: start: 201310, end: 201311
  2. LATUDA [Suspect]
     Active Substance: LURASIDONE HYDROCHLORIDE
     Indication: DEMENTIA ALZHEIMER^S TYPE
     Route: 048
     Dates: start: 201310, end: 201311

REACTIONS (8)
  - Off label use [None]
  - Dementia Alzheimer^s type [Fatal]
  - Aggression [Fatal]
  - Drug ineffective [None]
  - Unresponsive to stimuli [Fatal]
  - Hypophagia [Fatal]
  - Pneumonia [Fatal]
  - Fluid intake reduced [Fatal]

NARRATIVE: CASE EVENT DATE: 2013
